FAERS Safety Report 6161639-9 (Version None)
Quarter: 2009Q2

REPORT INFORMATION
  Report Type: 
  Country: None (occurrence: None)
  Receive Date: 20090417
  Receipt Date: 20090408
  Transmission Date: 20091009
  Serious: Yes (Other)
  Sender: FDA-Public Use
  Company Number: 2009S1000118

PATIENT
  Age: 72 Year
  Sex: Male
  Weight: 87.0906 kg

DRUGS (3)
  1. SORIATANE [Suspect]
     Indication: PITYRIASIS RUBRA PILARIS
     Dosage: 25 MG;QOD;PO
     Route: 048
     Dates: start: 20090101
  2. DOXEPIN HCL [Suspect]
     Indication: DEPRESSION
     Dosage: 10 MG;QD
     Dates: start: 20090101
  3. AMBIEN [Concomitant]

REACTIONS (8)
  - ALOPECIA [None]
  - BLOOD PRESSURE INCREASED [None]
  - GAIT DISTURBANCE [None]
  - LOCALISED INFECTION [None]
  - OFF LABEL USE [None]
  - SKIN EXFOLIATION [None]
  - SKIN HAEMORRHAGE [None]
  - VISUAL IMPAIRMENT [None]
